FAERS Safety Report 9149337 (Version 1)
Quarter: 2013Q1

REPORT INFORMATION
  Report Type: Spontaneous
  Country: US (occurrence: US)
  Receive Date: 20130308
  Receipt Date: 20130308
  Transmission Date: 20140127
  Serious: No
  Sender: FDA-Public Use
  Company Number: US-PFIZER INC-2013077505

PATIENT
  Age: 81 Year
  Sex: Female
  Weight: 77.1 kg

DRUGS (5)
  1. PRISTIQ [Suspect]
     Indication: DEPRESSION
     Dosage: 100 MG, 1X/DAY
     Dates: end: 201208
  2. PRISTIQ [Suspect]
     Dosage: 100 MG, 1X/DAY
     Dates: start: 201208, end: 201210
  3. FUROSEMIDE [Concomitant]
     Dosage: 5-10MG DAILY
  4. ZETIA [Concomitant]
     Dosage: 10 MG, UNK
  5. MIRAPEX [Concomitant]
     Dosage: 0.5 MG, 4X/DAY

REACTIONS (2)
  - Nausea [Recovered/Resolved]
  - Dizziness [Recovered/Resolved]
